FAERS Safety Report 7899011-3 (Version None)
Quarter: 2011Q4

REPORT INFORMATION
  Report Type: 
  Country: None (occurrence: None)
  Receive Date: 20111107
  Receipt Date: 20111103
  Transmission Date: 20120403
  Serious: Yes (Life-Threatening, Other)
  Sender: FDA-Public Use
  Company Number: US-ASTRAZENECA-2011SE66403

PATIENT
  Age: 49 Year
  Sex: Female

DRUGS (13)
  1. SYNTHROID [Concomitant]
  2. SAPHRIS [Suspect]
     Indication: BIPOLAR I DISORDER
     Route: 060
     Dates: start: 20110913, end: 20110915
  3. ZOCOR [Concomitant]
  4. LISINOPRIL [Concomitant]
  5. NORTRIPTYLINE HCL [Concomitant]
  6. KLONOPIN [Concomitant]
  7. AMBIEN CR [Concomitant]
  8. HYDROCHLOROTHIAZIDE [Concomitant]
  9. ADDERALL XR 10 [Concomitant]
  10. PHENERGAN HCL [Concomitant]
  11. SEROQUEL [Suspect]
     Indication: BIPOLAR I DISORDER
     Dosage: 50 MG EVERY MORNING AND NOON, 100 MG EVERY HOUR OF SLEEP
     Route: 048
     Dates: end: 20110912
  12. SEROQUEL [Suspect]
     Dosage: 50 MG EVERY MORNING AND NOON, 100 MG EVERY HOUR OF SLEEP
     Route: 048
     Dates: start: 20110914
  13. PREVACID [Concomitant]

REACTIONS (10)
  - PANIC ATTACK [None]
  - INAPPROPRIATE AFFECT [None]
  - BLISTER [None]
  - EAR DISORDER [None]
  - SOMNOLENCE [None]
  - MOOD ALTERED [None]
  - DRUG INEFFECTIVE [None]
  - AGITATION [None]
  - DEPRESSION [None]
  - PARANOIA [None]
